FAERS Safety Report 9123606 (Version 1)
Quarter: 2013Q1

REPORT INFORMATION
  Report Type: Report from Study
  Country: CA (occurrence: CA)
  Receive Date: 20130227
  Receipt Date: 20130227
  Transmission Date: 20140127
  Serious: Yes (Other)
  Sender: FDA-Public Use
  Company Number: CA-ROCHE-1195807

PATIENT
  Age: 53 Year
  Sex: Male

DRUGS (8)
  1. PEGASYS [Suspect]
     Indication: HEPATITIS C
     Route: 058
     Dates: start: 20130131
  2. RIBAVIRIN [Suspect]
     Indication: HEPATITIS C
     Route: 048
     Dates: start: 20130131
  3. VICTRELIS [Concomitant]
  4. OXYNEO [Concomitant]
     Route: 065
  5. AMITRIPTYLINE [Concomitant]
  6. ELIDEL [Concomitant]
     Indication: PSORIASIS
     Route: 065
  7. LORAZEPAM [Concomitant]
     Route: 065
  8. ADVIL [Concomitant]
     Route: 065

REACTIONS (3)
  - Palpitations [Not Recovered/Not Resolved]
  - Dyspnoea [Not Recovered/Not Resolved]
  - Productive cough [Not Recovered/Not Resolved]
